FAERS Safety Report 14471614 (Version 1)
Quarter: 2018Q1

REPORT INFORMATION
  Report Type: Report from Study
  Country: CA (occurrence: CA)
  Receive Date: 20180131
  Receipt Date: 20180131
  Transmission Date: 20180509
  Serious: Yes (Death)
  Sender: FDA-Public Use
  Company Number: PHHY2018CA014999

PATIENT
  Age: 74 Year
  Sex: Female

DRUGS (1)
  1. REVOLADE [Suspect]
     Active Substance: ELTROMBOPAG
     Indication: IMMUNE THROMBOCYTOPENIC PURPURA
     Dosage: 75 MG, BID
     Route: 048
     Dates: start: 20180112

REACTIONS (1)
  - Death [Fatal]

NARRATIVE: CASE EVENT DATE: 20180128
